FAERS Safety Report 7582468-5 (Version None)
Quarter: 2011Q2

REPORT INFORMATION
  Report Type: 
  Country: None (occurrence: None)
  Receive Date: 20110630
  Receipt Date: 20110628
  Transmission Date: 20111010
  Serious: No
  Sender: FDA-Public Use
  Company Number: US-JNJFOC-20110507814

PATIENT
  Sex: Female
  Weight: 81.65 kg

DRUGS (4)
  1. TOPIRAMATE [Suspect]
     Indication: MIGRAINE
     Route: 048
     Dates: start: 20100101
  2. TOPAMAX [Suspect]
     Indication: MIGRAINE
     Route: 048
     Dates: start: 20080101, end: 20100101
  3. VENLAFAXINE [Concomitant]
     Indication: ANXIETY
     Route: 048
  4. WELLBUTRIN [Concomitant]
     Indication: ANXIETY
     Route: 048

REACTIONS (5)
  - VISUAL IMPAIRMENT [None]
  - THERAPY CESSATION [None]
  - MIGRAINE WITH AURA [None]
  - HEADACHE [None]
  - PRURITUS [None]
